FAERS Safety Report 8631626 (Version 2)
Quarter: 2013Q1

REPORT INFORMATION
  Report Type: Spontaneous
  Country: US (occurrence: US)
  Receive Date: 20120625
  Receipt Date: 20130101
  Transmission Date: 20140127
  Serious: No
  Sender: FDA-Public Use
  Company Number: US-BIOGENIDEC-2012BI021282

PATIENT
  Age: 54 Year
  Sex: Female

DRUGS (4)
  1. TYSABRI [Suspect]
     Indication: MULTIPLE SCLEROSIS
     Route: 042
     Dates: start: 20120412
  2. ANTI DEPRESSANT [Concomitant]
     Indication: DEPRESSION
  3. TYLENOL [Concomitant]
     Indication: PREMEDICATION
  4. CLARITIN [Concomitant]
     Indication: PREMEDICATION

REACTIONS (7)
  - Pallor [Recovered/Resolved]
  - Underdose [Recovered/Resolved]
  - Adverse drug reaction [Unknown]
  - Flushing [Recovered/Resolved]
  - Vomiting [Not Recovered/Not Resolved]
  - Chills [Recovered/Resolved]
  - Gastrointestinal viral infection [Recovered/Resolved]
